FAERS Safety Report 5016555-2 (Version None)
Quarter: 2006Q2

REPORT INFORMATION
  Report Type: 
  Country: None (occurrence: None)
  Receive Date: 20060602
  Receipt Date: 20060524
  Transmission Date: 20061013
  Serious: Yes (Disabling)
  Sender: FDA-Public Use
  Company Number: PHBS2006NO07684

PATIENT
  Age: 59 Year
  Sex: Male

DRUGS (5)
  1. TEGRETOL [Suspect]
     Indication: BIPOLAR I DISORDER
     Route: 048
     Dates: start: 19940101, end: 20031001
  2. VALPROATE SODIUM [Suspect]
     Indication: BIPOLAR I DISORDER
     Dosage: 600 MG, BID
     Route: 048
     Dates: start: 20031001
  3. LIPITOR [Concomitant]
     Dosage: 20 MG, QHS
     Route: 048
  4. LEVAXIN [Concomitant]
     Dosage: 50 MCG/DAY
     Route: 048
  5. LARGACTIL [Concomitant]
     Dosage: UNK, PRN
     Route: 048

REACTIONS (1)
  - MUSCLE DISORDER [None]
